FAERS Safety Report 12496862 (Version 1)
Quarter: 2016Q2

REPORT INFORMATION
  Report Type: Spontaneous
  Country: FR (occurrence: FR)
  Receive Date: 20160624
  Receipt Date: 20160624
  Transmission Date: 20160815
  Serious: Yes (Hospitalization, Disabling, Other)
  Sender: FDA-Public Use
  Company Number: FR-BRISTOL-MYERS SQUIBB COMPANY-BMS-2016-051441

PATIENT
  Age: 48 Year
  Sex: Female

DRUGS (1)
  1. NIVOLUMAB [Suspect]
     Active Substance: NIVOLUMAB
     Indication: LUNG NEOPLASM MALIGNANT
     Dosage: NOT AVAILABLE
     Route: 065

REACTIONS (6)
  - Malignant neoplasm progression [Unknown]
  - Hepatitis [Unknown]
  - Gastrooesophageal reflux disease [Unknown]
  - Labyrinthitis [Unknown]
  - Headache [Recovered/Resolved]
  - Facial paralysis [Unknown]
